FAERS Safety Report 19140076 (Version 2)
Quarter: 2024Q4

REPORT INFORMATION
  Report Type: Spontaneous
  Country: US (occurrence: US)
  Receive Date: 20210415
  Receipt Date: 20241108
  Transmission Date: 20250114
  Serious: Yes (Hospitalization, Other)
  Sender: BRISTOL-MYERS SQUIBB COMPANY
  Company Number: US-BRISTOL-MYERS SQUIBB COMPANY-BMS-2021-033619

PATIENT
  Age: 30 Year
  Sex: Male

DRUGS (5)
  1. BELATACEPT [Suspect]
     Active Substance: BELATACEPT
     Indication: Lung transplant
     Dosage: 1 MONTH
     Dates: end: 201911
  2. PREDNISONE [Suspect]
     Active Substance: PREDNISONE
     Indication: Immunosuppressant drug therapy
     Dosage: UNK
     Dates: start: 201612, end: 201911
  3. TACROLIMUS [Suspect]
     Active Substance: TACROLIMUS
     Indication: Immunosuppressant drug therapy
     Dosage: UNK
     Dates: start: 201612, end: 201911
  4. MYCOPHENOLATE MOFETIL [Suspect]
     Active Substance: MYCOPHENOLATE MOFETIL
     Indication: Immunosuppressant drug therapy
     Dosage: UNK
     Dates: start: 201612, end: 201911
  5. IMMUNOGLOBULINS [Concomitant]
     Indication: Immunosuppressant drug therapy
     Route: 042

REACTIONS (3)
  - Brain abscess [Recovered/Resolved]
  - Aspergillus infection [Recovered/Resolved]
  - Off label use [Unknown]

NARRATIVE: CASE EVENT DATE: 20191101
